FAERS Safety Report 8742237 (Version 4)
Quarter: 2013Q1

REPORT INFORMATION
  Report Type: Report from Study
  Country: TR (occurrence: TR)
  Receive Date: 20120824
  Receipt Date: 20130124
  Transmission Date: 20140127
  Serious: Yes (Death, Life-Threatening, Hospitalization)
  Sender: FDA-Public Use
  Company Number: PHHO2012TR012291

PATIENT
  Age: 71 Year
  Sex: Male
  Weight: 80 kg

DRUGS (4)
  1. AMN107 [Suspect]
     Indication: CHRONIC MYELOID LEUKAEMIA
     Dosage: 300 MG, BID
     Route: 048
     Dates: start: 20120417, end: 20120822
  2. AMN107 [Suspect]
     Dosage: 600 MG, QD
     Dates: start: 20120902
  3. ACETYLSALICYLIC ACID [Concomitant]
     Indication: CORONARY ARTERY DISEASE
     Dosage: 100 MG, UNK
     Dates: start: 20120823
  4. BETA BLOCKING AGENTS [Concomitant]
     Indication: CORONARY ARTERY DISEASE
     Dosage: 50 MG, UNK
     Dates: start: 20120823

REACTIONS (1)
  - Acute myocardial infarction [Fatal]
